FAERS Safety Report 21327402 (Version 1)
Quarter: 2022Q3

REPORT INFORMATION
  Report Type: Spontaneous
  Country: GB (occurrence: GB)
  Receive Date: 20220913
  Receipt Date: 20220913
  Transmission Date: 20221026
  Serious: No
  Sender: FDA-Public Use
  Company Number: None

PATIENT
  Age: 42 Year
  Sex: Male

DRUGS (16)
  1. TOLVAPTAN [Suspect]
     Active Substance: TOLVAPTAN
     Indication: Congenital cystic kidney disease
     Dosage: 15 MILLIGRAM
     Route: 048
     Dates: start: 20180510
  2. TOLVAPTAN [Suspect]
     Active Substance: TOLVAPTAN
     Dosage: 45 MILLIGRAM
     Route: 048
     Dates: start: 20180510
  3. TOLVAPTAN [Suspect]
     Active Substance: TOLVAPTAN
     Dosage: 30 MILLIGRAM
     Route: 048
     Dates: start: 20180712
  4. TOLVAPTAN [Suspect]
     Active Substance: TOLVAPTAN
     Dosage: 60 MILLIGRAM
     Route: 048
     Dates: start: 20180712
  5. TOLVAPTAN [Suspect]
     Active Substance: TOLVAPTAN
     Dosage: 15 MILLIGRAM
     Route: 048
     Dates: start: 20181128
  6. TOLVAPTAN [Suspect]
     Active Substance: TOLVAPTAN
     Dosage: 45 MILLIGRAM
     Route: 048
     Dates: start: 20181128
  7. TOLVAPTAN [Suspect]
     Active Substance: TOLVAPTAN
     Dosage: 30 MILLIGRAM
     Route: 048
     Dates: start: 20181219
  8. TOLVAPTAN [Suspect]
     Active Substance: TOLVAPTAN
     Dosage: 60 MILLIGRAM
     Route: 048
     Dates: start: 20181219
  9. TOLVAPTAN [Suspect]
     Active Substance: TOLVAPTAN
     Dosage: 30 MILLIGRAM
     Route: 048
     Dates: start: 20190117
  10. TOLVAPTAN [Suspect]
     Active Substance: TOLVAPTAN
     Dosage: 90 MILLIGRAM
     Route: 048
     Dates: start: 20190117
  11. TOLVAPTAN [Suspect]
     Active Substance: TOLVAPTAN
     Dosage: 30 MILLIGRAM
     Route: 048
     Dates: start: 20190213
  12. TOLVAPTAN [Suspect]
     Active Substance: TOLVAPTAN
     Dosage: 90 MILLIGRAM
     Route: 048
     Dates: start: 20190213
  13. AMLODIPINE [Concomitant]
     Active Substance: AMLODIPINE BESYLATE
     Indication: Product used for unknown indication
     Dosage: 10 MILLIGRAM PER DAY
     Route: 048
     Dates: start: 20170831
  14. CLARITHROMYCIN [Concomitant]
     Active Substance: CLARITHROMYCIN
     Indication: Product used for unknown indication
     Dosage: 500 MILLIGRAM PER DAY
     Route: 065
     Dates: start: 20180510
  15. PERINDOPRIL [Concomitant]
     Active Substance: PERINDOPRIL
     Indication: Product used for unknown indication
     Dosage: 8 MILLIGRAM PER DAY
     Route: 048
     Dates: start: 20131219
  16. TESTOSTERONE UNDECANOATE [Concomitant]
     Active Substance: TESTOSTERONE UNDECANOATE
     Indication: Hormone replacement therapy
     Dosage: 631.5 MILLIGRAM, EVERY 11 WEEKS
     Route: 065
     Dates: start: 20180510

REACTIONS (2)
  - Diarrhoea [Recovered/Resolved]
  - Nocturia [Not Recovered/Not Resolved]

NARRATIVE: CASE EVENT DATE: 20180712
